FAERS Safety Report 7943438-8 (Version None)
Quarter: 2011Q4

REPORT INFORMATION
  Report Type: 
  Country: None (occurrence: None)
  Receive Date: 20111128
  Receipt Date: 20111122
  Transmission Date: 20120403
  Serious: Yes (Other)
  Sender: FDA-Public Use
  Company Number: US-TEVA-304788USA

PATIENT
  Sex: Female

DRUGS (1)
  1. QVAR 40 [Suspect]
     Indication: ASTHMA
     Dosage: 2 PUFFS BID
     Dates: start: 20110401, end: 20111008

REACTIONS (2)
  - SUICIDAL IDEATION [None]
  - AGGRESSION [None]
